FAERS Safety Report 25036274 (Version 1)
Quarter: 2025Q1

REPORT INFORMATION
  Report Type: Spontaneous
  Country: CN (occurrence: CN)
  Receive Date: 20250304
  Receipt Date: 20250304
  Transmission Date: 20250409
  Serious: Yes (Other)
  Sender: BAYER HEALTHCARE PHARMACEUTICALS INC.
  Company Number: CN-BAYER-2025A026729

PATIENT
  Age: 93 Year
  Sex: Male
  Weight: 50 kg

DRUGS (1)
  1. AVELOX [Suspect]
     Active Substance: MOXIFLOXACIN HYDROCHLORIDE
     Indication: Liver abscess
     Dosage: 0.4 G, QD
     Route: 048
     Dates: start: 20250220, end: 20250222

REACTIONS (6)
  - Mental disorder [Recovered/Resolved]
  - Hallucination [Recovered/Resolved]
  - Disorganised speech [Recovered/Resolved]
  - Sleep disorder [Recovered/Resolved]
  - Product prescribing issue [None]
  - Product use in unapproved indication [None]

NARRATIVE: CASE EVENT DATE: 20250220
